FAERS Safety Report 8857728 (Version 3)
Quarter: 2013Q2

REPORT INFORMATION
  Report Type: Report from Study
  Country: US (occurrence: US)
  Receive Date: 20121024
  Receipt Date: 20130614
  Transmission Date: 20140414
  Serious: Yes (Other)
  Sender: FDA-Public Use
  Company Number: US-BAXTER-2012BAX020904

PATIENT
  Age: 17 Year
  Sex: Male
  Weight: 97.61 kg

DRUGS (9)
  1. GAMMAGARD LIQUID [Suspect]
     Indication: SELECTIVE IGG SUBCLASS DEFICIENCY
     Route: 042
     Dates: start: 20120120
  2. GAMMAGARD LIQUID [Suspect]
     Route: 042
     Dates: start: 20121015, end: 20121015
  3. PREDNISONE [Concomitant]
     Indication: INFECTION
     Route: 048
  4. SINGULAR [Concomitant]
     Indication: PRODUCT USED FOR UNKNOWN INDICATION
     Route: 048
  5. CLARITIN D [Concomitant]
     Indication: PRODUCT USED FOR UNKNOWN INDICATION
     Route: 048
  6. NASONEX [Concomitant]
     Indication: PRODUCT USED FOR UNKNOWN INDICATION
     Route: 045
  7. ALBUTEROL [Concomitant]
     Indication: PRODUCT USED FOR UNKNOWN INDICATION
     Route: 045
  8. FLORASTOR [Concomitant]
     Indication: PRODUCT USED FOR UNKNOWN INDICATION
  9. EPIPEN [Concomitant]
     Indication: FOOD ALLERGY
     Route: 030

REACTIONS (13)
  - Ear infection [Recovered/Resolved]
  - Sinusitis [Recovered/Resolved]
  - Dizziness [Not Recovered/Not Resolved]
  - Fatigue [Unknown]
  - Motion sickness [Recovered/Resolved]
  - Headache [Unknown]
  - Vertigo [Not Recovered/Not Resolved]
  - Weight decreased [Recovered/Resolved]
  - Musculoskeletal stiffness [Recovered/Resolved]
  - Dysuria [Recovered/Resolved]
  - Abdominal pain upper [Unknown]
  - Urine abnormality [Unknown]
  - Dysuria [Unknown]
